FAERS Safety Report 22764736 (Version 3)
Quarter: 2025Q2

REPORT INFORMATION
  Report Type: Spontaneous
  Country: US (occurrence: US)
  Receive Date: 20230731
  Receipt Date: 20250503
  Transmission Date: 20250716
  Serious: Yes (Other)
  Sender: AUROBINDO
  Company Number: US-AUROBINDO-AUR-APL-2023-050326

PATIENT
  Age: 77 Year
  Sex: Female

DRUGS (2)
  1. DULOXETINE [Suspect]
     Active Substance: DULOXETINE
     Indication: Narcolepsy
     Route: 065
  2. DULOXETINE [Suspect]
     Active Substance: DULOXETINE
     Indication: Pain
     Dosage: 60 MILLIGRAM, ONCE A DAY
     Route: 065

REACTIONS (3)
  - Paralysis [Recovered/Resolved]
  - Cataplexy [Recovered/Resolved]
  - Drug withdrawal syndrome [Recovered/Resolved]
